FAERS Safety Report 8328937-1 (Version None)
Quarter: 2012Q2

REPORT INFORMATION
  Report Type: 
  Country: None (occurrence: None)
  Receive Date: 20120430
  Receipt Date: 20120416
  Transmission Date: 20120825
  Serious: Yes (Hospitalization, Other)
  Sender: FDA-Public Use
  Company Number: 2012P1014133

PATIENT
  Age: 66 Year
  Sex: Female

DRUGS (5)
  1. NORVASC [Concomitant]
  2. ZEGERID [Concomitant]
  3. ASPIRIN [Concomitant]
  4. CLOBETASOL PROPIONATE [Suspect]
     Indication: LICHEN SCLEROSUS
     Dosage: BID;TOP
     Route: 061
     Dates: start: 20120404, end: 20120412
  5. CLOBETASOL PROPIONATE [Suspect]
     Indication: LICHEN SCLEROSUS
     Dates: start: 20060101, end: 20060101

REACTIONS (6)
  - BLOOD PRESSURE INCREASED [None]
  - VISUAL IMPAIRMENT [None]
  - PERONEAL NERVE PALSY [None]
  - EMOTIONAL DISORDER [None]
  - CEREBROVASCULAR ACCIDENT [None]
  - PRURITUS [None]
